FAERS Safety Report 10235813 (Version 3)
Quarter: 2014Q4

REPORT INFORMATION
  Report Type: Spontaneous
  Country: LU (occurrence: None)
  Receive Date: 20140611
  Receipt Date: 20141203
  Transmission Date: 20150528
  Serious: Yes (Hospitalization, Other)
  Sender: FDA-Public Use
  Company Number: LU-20140001

PATIENT
  Age: 58 Year
  Sex: Female

DRUGS (3)
  1. LIPIODOL ULTRA-FLUIDE [Suspect]
     Active Substance: ETHIODIZED OIL
     Indication: ENDOSCOPY UPPER GASTROINTESTINAL TRACT
     Dosage: 1 ML (1 ML, 1 IN 1 D), INTRAVENOUS (NOT OTHERWISE SPECIFIED)?
     Route: 042
     Dates: start: 20140523, end: 20140523
  2. SOMATOSTATIN (SOMATOSTATIN) (SOMATOSTATIN) [Concomitant]
  3. HISTOACRYL (ENBUCRILATE) (ENBUCRILATE) [Concomitant]

REACTIONS (4)
  - Nervous system disorder [None]
  - Product use issue [None]
  - Aphasia [None]
  - Cerebral artery embolism [None]

NARRATIVE: CASE EVENT DATE: 20140524
